FAERS Safety Report 4305901-0 (Version None)
Quarter: 2004Q1

REPORT INFORMATION
  Report Type: 
  Country: None (occurrence: None)
  Receive Date: 20040226
  Receipt Date: 20030206
  Transmission Date: 20041129
  Serious: Yes (Hospitalization, Disabling)
  Sender: FDA-Public Use
  Company Number: WAES 0302USA01018

PATIENT
  Age: 61 Year
  Sex: Male
  Weight: 84 kg

DRUGS (10)
  1. [THERAPY UNSPECIFIED] [Concomitant]
  2. VICODIN [Concomitant]
     Indication: LOCALISED OSTEOARTHRITIS
  3. XANAX [Concomitant]
  4. TRIMOX [Concomitant]
  5. ATENOLOL [Concomitant]
  6. SOMA [Concomitant]
  7. RELAFEN [Concomitant]
  8. VIOXX [Suspect]
     Indication: LOCALISED OSTEOARTHRITIS
     Route: 048
     Dates: start: 19990902, end: 20011201
  9. VIOXX [Suspect]
     Route: 048
     Dates: start: 19990902, end: 20011201
  10. COVERA-HS [Concomitant]
     Indication: BLOOD PRESSURE

REACTIONS (31)
  - ABDOMINAL PAIN [None]
  - ABSCESS JAW [None]
  - ANGINA PECTORIS [None]
  - ANXIETY [None]
  - BLOOD CHOLESTEROL INCREASED [None]
  - BLOOD CREATINE PHOSPHOKINASE INCREASED [None]
  - BLOOD PRESSURE INCREASED [None]
  - CARDIAC MURMUR [None]
  - CAROTID ARTERY STENOSIS [None]
  - CORONARY ARTERY DISEASE [None]
  - DEPRESSION [None]
  - DRUG HYPERSENSITIVITY [None]
  - DUODENAL ULCER [None]
  - DUODENAL ULCER HAEMORRHAGE [None]
  - DUODENITIS [None]
  - FOOD POISONING [None]
  - GASTRITIS [None]
  - GASTROENTERITIS [None]
  - GASTROINTESTINAL DISORDER [None]
  - GASTROINTESTINAL HAEMORRHAGE [None]
  - GOUT [None]
  - GOUTY ARTHRITIS [None]
  - HAEMOGLOBIN DECREASED [None]
  - HYPERTENSION [None]
  - MYOCARDIAL INFARCTION [None]
  - OEDEMA PERIPHERAL [None]
  - OESOPHAGEAL DISORDER [None]
  - OSTEOARTHRITIS [None]
  - OTITIS MEDIA [None]
  - OVERDOSE [None]
  - PAIN IN EXTREMITY [None]
